FAERS Safety Report 6344293-2 (Version None)
Quarter: 2009Q3

REPORT INFORMATION
  Report Type: 
  Country: None (occurrence: None)
  Receive Date: 20090821
  Receipt Date: 20090422
  Transmission Date: 20100115
  Serious: No
  Sender: FDA-Public Use
  Company Number: 8045161

PATIENT
  Age: 55 Year
  Sex: Female
  Weight: 58.7 kg

DRUGS (8)
  1. CIMZIA [Suspect]
     Indication: CROHN'S DISEASE
     Dosage: 400 MG SC
     Route: 058
     Dates: start: 20081203
  2. INEXIUM [Concomitant]
  3. CYMBALTA [Concomitant]
  4. LISINOPRIL [Concomitant]
  5. LEVOTHYROXINE SODIUM [Concomitant]
  6. PROVIGIL [Concomitant]
  7. OXYCODONE [Concomitant]
  8. METHADONE HYDROCHLORIDE [Concomitant]

REACTIONS (2)
  - ABDOMINAL PAIN [None]
  - ARTHRALGIA [None]
